FAERS Safety Report 21678504 (Version 8)
Quarter: 2024Q4

REPORT INFORMATION
  Report Type: Spontaneous
  Country: US (occurrence: US)
  Receive Date: 20221203
  Receipt Date: 20241212
  Transmission Date: 20250114
  Serious: No
  Sender: LUPIN
  Company Number: US-LUPIN PHARMACEUTICALS INC.-2022-14067

PATIENT

DRUGS (5)
  1. ALBUTEROL SULFATE [Suspect]
     Active Substance: ALBUTEROL SULFATE
     Indication: Asthma
     Dosage: UNK, EVERY COUPLE OF HOURS PRN
     Dates: start: 20221108
  2. ALBUTEROL SULFATE [Suspect]
     Active Substance: ALBUTEROL SULFATE
     Dosage: UNK, PRN
     Dates: start: 20230125
  3. ALBUTEROL SULFATE [Suspect]
     Active Substance: ALBUTEROL SULFATE
     Dosage: UNK, PRN
     Dates: start: 202306
  4. ALBUTEROL SULFATE [Suspect]
     Active Substance: ALBUTEROL SULFATE
     Dosage: UNK, PRN
     Dates: start: 20230616
  5. ALBUTEROL SULFATE [Suspect]
     Active Substance: ALBUTEROL SULFATE
     Dosage: 2 PUFFS EVERY 4 H AS NEEDED

REACTIONS (7)
  - Discomfort [Unknown]
  - Drug dose omission by device [Unknown]
  - Device deposit issue [Unknown]
  - Wrong technique in device usage process [Unknown]
  - Circumstance or information capable of leading to device use error [Unknown]
  - Wrong technique in product usage process [Unknown]
  - Device delivery system issue [Unknown]
